FAERS Safety Report 6715356-4 (Version None)
Quarter: 2010Q2

REPORT INFORMATION
  Report Type: 
  Country: None (occurrence: None)
  Receive Date: 20100507
  Receipt Date: 20100505
  Transmission Date: 20101027
  Serious: Yes (Death)
  Sender: FDA-Public Use
  Company Number: US-BRISTOL-MYERS SQUIBB COMPANY-15092877

PATIENT
  Age: 60 Year
  Sex: Male

DRUGS (1)
  1. ORENCIA [Suspect]
     Indication: RHEUMATOID ARTHRITIS
     Dosage: ORENCIA 750MG IV (3 VIALS)MONTHLY,RECEIVED 7 OR 8 INF OVER ABOUT 6 MONTHS;LAST INFUSION ON 27APR10
     Route: 042

REACTIONS (1)
  - DEATH [None]
